FAERS Safety Report 9521438 (Version 2)
Quarter: 2013Q4

REPORT INFORMATION
  Report Type: Spontaneous
  Country: US (occurrence: None)
  Receive Date: 20130911
  Receipt Date: 20131104
  Transmission Date: 20140711
  Serious: Yes (Hospitalization, Other)
  Sender: FDA-Public Use
  Company Number: ACO_38217_2013

PATIENT
  Age: 55 Year
  Sex: Male

DRUGS (5)
  1. AMPYRA [Suspect]
     Indication: MULTIPLE SCLEROSIS
     Route: 048
  2. DIOVAN [Suspect]
     Indication: PRODUCT USED FOR UNKNOWN INDICATION
  3. SIMVASTATIN (SIMVASTATIN) [Concomitant]
  4. AVONEX [Concomitant]
  5. TECIFIDERA (DIMETHYL FUMARATE) [Concomitant]

REACTIONS (5)
  - Prostate cancer [None]
  - Orthostatic hypotension [None]
  - Sensory disturbance [None]
  - Musculoskeletal stiffness [None]
  - Fall [None]
